FAERS Safety Report 8200350-7 (Version None)
Quarter: 2012Q1

REPORT INFORMATION
  Report Type: 
  Country: None (occurrence: None)
  Receive Date: 20120312
  Receipt Date: 20120229
  Transmission Date: 20120608
  Serious: Yes (Hospitalization, Other)
  Sender: FDA-Public Use
  Company Number: BR-NOVOPROD-335744

PATIENT
  Age: 67 Year
  Sex: Female
  Weight: 74.4 kg

DRUGS (3)
  1. LIRAGLUTIDE FLEXPEN [Suspect]
     Indication: TYPE 2 DIABETES MELLITUS
     Dosage: 1.8 MG, QD
     Route: 058
     Dates: start: 20110913, end: 20110914
  2. LIRAGLUTIDE FLEXPEN [Suspect]
     Dosage: UNK
     Dates: start: 20110824
  3. LIRAGLUTIDE FLEXPEN [Suspect]
     Dosage: 1.2 MG, QD
     Route: 058
     Dates: start: 20110915

REACTIONS (3)
  - CHOLECYSTITIS [None]
  - CHOLECYSTITIS CHRONIC [None]
  - CONDITION AGGRAVATED [None]
